FAERS Safety Report 6722886-8 (Version None)
Quarter: 2010Q2

REPORT INFORMATION
  Report Type: 
  Country: None (occurrence: None)
  Receive Date: 20100512
  Receipt Date: 20100512
  Transmission Date: 20101027
  Serious: Yes (Hospitalization)
  Sender: FDA-Public Use
  Company Number: None

PATIENT
  Weight: 111.5849 kg

DRUGS (9)
  1. IXABEPILONE 15MG - BRISTOL MYERS SQUIBB [Suspect]
     Indication: RECTAL CANCER METASTATIC
     Dosage: 40MG/M2 IV Q3WK
     Dates: start: 20100427
  2. DASATINIB 50MG - BRISTOL MYERS SQUIBB [Suspect]
     Dosage: 100MG PO DAILY
     Route: 048
     Dates: start: 20100427
  3. MORPHINE [Concomitant]
  4. HYDROMORPHONE HCL [Concomitant]
  5. ONDANSETRON [Concomitant]
  6. FLOMAX [Concomitant]
  7. FINASTERIDE [Concomitant]
  8. SERTRALINE HCL [Concomitant]
  9. DECONSAL [Concomitant]

REACTIONS (2)
  - CONSTIPATION [None]
  - VOMITING [None]
